APPROVED DRUG PRODUCT: AMOXICILLIN AND CLAVULANATE POTASSIUM
Active Ingredient: AMOXICILLIN; CLAVULANATE POTASSIUM
Strength: 250MG;EQ 125MG BASE
Dosage Form/Route: TABLET;ORAL
Application: A065189 | Product #001 | TE Code: AB
Applicant: SANDOZ INC
Approved: Aug 23, 2005 | RLD: No | RS: Yes | Type: RX